FAERS Safety Report 10618125 (Version 2)
Quarter: 2014Q4

REPORT INFORMATION
  Report Type: Spontaneous
  Country: RU (occurrence: RU)
  Receive Date: 20141202
  Receipt Date: 20141209
  Transmission Date: 20150529
  Serious: Yes (Other)
  Sender: FDA-Public Use
  Company Number: RU-AMGEN-RUSSP2014093395

PATIENT
  Age: 41 Year
  Sex: Male

DRUGS (6)
  1. RIBAVIRIN. [Concomitant]
     Active Substance: RIBAVIRIN
     Indication: HEPATITIS C
     Dosage: 1200 MG/DAY, 1 IN 1 D
     Route: 065
  2. PEGASYS [Suspect]
     Active Substance: PEGINTERFERON ALFA-2A
     Dosage: 135 MCG, 1 IN 1 WK
     Route: 065
  3. LEUCOSTIM [Suspect]
     Active Substance: FILGRASTIM
     Indication: NEUTROPENIA
     Dosage: 300 MG, QWK, 4 DAYS BEFORE EACH PEGINTERFERON ALFA-2A INJECTION
     Route: 058
  4. PEGASYS [Suspect]
     Active Substance: PEGINTERFERON ALFA-2A
     Indication: HEPATITIS C
     Dosage: 180 MCG, 1 IN 1 WK
     Route: 065
  5. NEUPOGEN [Suspect]
     Active Substance: FILGRASTIM
     Indication: NEUTROPENIA
     Dosage: 5 INJECTIONS TOTAL 300 MCG, 1 IN 1 WK
     Route: 058
  6. TELAPREVIR [Concomitant]
     Active Substance: TELAPREVIR
     Indication: HEPATITIS C
     Dosage: DURING MEALS 750 MG, EVERY 8 HR
     Route: 065

REACTIONS (6)
  - Body temperature increased [Recovered/Resolved]
  - Vasculitis [Recovered/Resolved]
  - Thrombocytopenia [Recovered/Resolved]
  - Chills [Recovered/Resolved]
  - Neutropenia [Unknown]
  - Asthenia [Recovered/Resolved]
